FAERS Safety Report 7112378-9 (Version None)
Quarter: 2010Q4

REPORT INFORMATION
  Report Type: 
  Country: None (occurrence: None)
  Receive Date: 20101119
  Receipt Date: 20101020
  Transmission Date: 20110411
  Serious: No
  Sender: FDA-Public Use
  Company Number: A0883520A

PATIENT
  Age: 79 Year
  Sex: Male

DRUGS (7)
  1. AVODART [Suspect]
     Indication: BENIGN PROSTATIC HYPERPLASIA
     Dosage: 1CAP PER DAY
     Route: 048
     Dates: start: 20090901, end: 20100301
  2. PLAVIX [Concomitant]
  3. LISINOPRIL [Concomitant]
  4. PRANDIN [Concomitant]
  5. RELAFEN [Concomitant]
  6. HYDROCODONE [Concomitant]
  7. HYTRIN [Concomitant]

REACTIONS (2)
  - BREAST PAIN [None]
  - BREAST SWELLING [None]
